FAERS Safety Report 4788795-9 (Version None)
Quarter: 2005Q3

REPORT INFORMATION
  Report Type: 
  Country: None (occurrence: None)
  Receive Date: 20050915
  Receipt Date: 20050610
  Transmission Date: 20060218
  Serious: No
  Sender: FDA-Public Use
  Company Number: BDI-007303

PATIENT
  Age: 75 Year
  Sex: Male

DRUGS (1)
  1. MULTIHANCE [Suspect]
     Indication: NUCLEAR MAGNETIC RESONANCE IMAGING BRAIN
     Dosage: 15 ML ONCE IV
     Route: 042

REACTIONS (5)
  - AGITATION [None]
  - DISORIENTATION [None]
  - HEADACHE [None]
  - HYPERHIDROSIS [None]
  - INCOHERENT [None]
